FAERS Safety Report 13190641 (Version 5)
Quarter: 2017Q2

REPORT INFORMATION
  Report Type: Spontaneous
  Country: NZ (occurrence: NZ)
  Receive Date: 20170206
  Receipt Date: 20170503
  Transmission Date: 20170830
  Serious: Yes (Other)
  Sender: FDA-Public Use
  Company Number: NZ-BEH-2017077766

PATIENT
  Age: 74 Year
  Sex: Male
  Weight: 80 kg

DRUGS (16)
  1. PRIVIGEN [Suspect]
     Active Substance: HUMAN IMMUNOGLOBULIN G
     Indication: STREPTOCOCCAL SEPSIS
  2. PRIVIGEN [Suspect]
     Active Substance: HUMAN IMMUNOGLOBULIN G
     Indication: SYSTEMIC INFLAMMATORY RESPONSE SYNDROME
  3. DESFLURANE. [Concomitant]
     Active Substance: DESFLURANE
     Dosage: UNK
     Route: 055
     Dates: start: 20160128
  4. DOXAZOCIN [Concomitant]
     Active Substance: DOXAZOSIN MESYLATE
     Indication: HYPERTENSION
     Dosage: 3 MG, UNK
     Route: 065
  5. ETOMIDATE. [Concomitant]
     Active Substance: ETOMIDATE
     Dosage: 10 MG, TOT
     Route: 042
     Dates: start: 20160128, end: 20160128
  6. KETAMINE [Concomitant]
     Active Substance: KETAMINE
     Dosage: 50 MG, TOT
     Route: 042
     Dates: start: 20160128, end: 20160128
  7. METARAMINOL [Concomitant]
     Active Substance: METARAMINOL
     Dosage: UNK
     Route: 042
     Dates: start: 20160128, end: 20160128
  8. PRIVIGEN [Suspect]
     Active Substance: HUMAN IMMUNOGLOBULIN G
     Indication: MYOSITIS
  9. REMIFENTANIL [Concomitant]
     Active Substance: REMIFENTANIL
     Dosage: UNK
     Route: 042
     Dates: start: 20160127
  10. PRIVIGEN [Suspect]
     Active Substance: HUMAN IMMUNOGLOBULIN G
     Indication: PYREXIA
  11. ROCURONIUM [Concomitant]
     Active Substance: ROCURONIUM BROMIDE
     Dosage: 50 MG, TOT
     Route: 042
     Dates: start: 20160128, end: 20160128
  12. AMIODARONE [Suspect]
     Active Substance: AMIODARONE
     Indication: ATRIAL FIBRILLATION
     Dosage: 38 MG, QH
     Route: 065
     Dates: start: 20170129, end: 20170129
  13. ACCUPRIL [Concomitant]
     Active Substance: QUINAPRIL HYDROCHLORIDE
     Indication: HYPERTENSION
     Dosage: 20 MG, UNK
     Route: 065
     Dates: start: 2011
  14. PRIVIGEN [Suspect]
     Active Substance: HUMAN IMMUNOGLOBULIN G
     Indication: BETA HAEMOLYTIC STREPTOCOCCAL INFECTION
     Dosage: 100 G, TOT, ALSO REPORTED 1G/KG
     Route: 042
     Dates: start: 20170128, end: 20170128
  15. LAMIVUDINE. [Concomitant]
     Active Substance: LAMIVUDINE
     Dosage: 100 MG, UNK
     Route: 045
     Dates: start: 201608
  16. PROPOFOL. [Concomitant]
     Active Substance: PROPOFOL
     Dosage: UNK
     Route: 042
     Dates: start: 20160127

REACTIONS (1)
  - Alanine aminotransferase increased [Recovering/Resolving]

NARRATIVE: CASE EVENT DATE: 20170130
